FAERS Safety Report 24259226 (Version 1)
Quarter: 2024Q3

REPORT INFORMATION
  Report Type: Spontaneous
  Country: US (occurrence: US)
  Receive Date: 20240828
  Receipt Date: 20240828
  Transmission Date: 20241016
  Serious: Yes (Other)
  Sender: BAYER
  Company Number: US-BAYER-2024A122914

PATIENT
  Sex: Male

DRUGS (2)
  1. LOTRIMIN (MICONAZOLE NITRATE) [Suspect]
     Active Substance: MICONAZOLE NITRATE
  2. TINACTIN [Suspect]
     Active Substance: TOLNAFTATE

REACTIONS (2)
  - Mesothelioma [None]
  - Pain [None]

NARRATIVE: CASE EVENT DATE: 20240523
